FAERS Safety Report 10646541 (Version 1)
Quarter: 2014Q4

REPORT INFORMATION
  Report Type: Report from Study
  Country: US (occurrence: US)
  Receive Date: 20141211
  Receipt Date: 20141211
  Transmission Date: 20150529
  Serious: Yes (Life-Threatening, Hospitalization, Other)
  Sender: FDA-Public Use
  Company Number: US-GLAXOSMITHKLINE-US2014GSK032778

PATIENT
  Age: 65 Year
  Sex: Female
  Weight: 58.8 kg

DRUGS (4)
  1. LOPERAMIDE [Concomitant]
     Active Substance: LOPERAMIDE
  2. HYDROCORTISONE. [Concomitant]
     Active Substance: HYDROCORTISONE
  3. TRAMETINIB [Suspect]
     Active Substance: TRAMETINIB
     Indication: ENDOMETRIAL ADENOCARCINOMA
     Dosage: 1 MG, QD
     Route: 048
     Dates: start: 20140821, end: 20141024
  4. GSK2141795 [Suspect]
     Active Substance: UPROSERTIB
     Indication: ENDOMETRIAL ADENOCARCINOMA
     Dosage: 25 MG, QD
     Route: 048
     Dates: start: 20140821, end: 20141024

REACTIONS (4)
  - Necrotising fasciitis [Recovered/Resolved]
  - Septic shock [Unknown]
  - Deep vein thrombosis [Unknown]
  - Respiratory failure [Recovered/Resolved]

NARRATIVE: CASE EVENT DATE: 20141026
